FAERS Safety Report 8030111-3 (Version None)
Quarter: 2012Q1

REPORT INFORMATION
  Report Type: 
  Country: None (occurrence: None)
  Receive Date: 20120109
  Receipt Date: 20111228
  Transmission Date: 20120608
  Serious: Yes (Death, Life-Threatening, Other)
  Sender: FDA-Public Use
  Company Number: JP-GENZYME-THYM-1002556

PATIENT
  Sex: Male
  Weight: 41 kg

DRUGS (135)
  1. THYMOGLOBULIN [Suspect]
     Dosage: 56 MG, QD
     Route: 042
     Dates: start: 20101103, end: 20101104
  2. HYDROCORTISONE SODIUM SUCCINATE [Concomitant]
     Indication: PREMEDICATION
     Dosage: UNK
     Route: 065
     Dates: start: 20101028, end: 20101119
  3. GLUTATHIONE [Concomitant]
     Indication: PROPHYLAXIS
     Dosage: UNK
     Route: 065
     Dates: start: 20100413, end: 20100609
  4. SODIUM BICARBONATE [Concomitant]
     Dosage: UNK
     Route: 065
     Dates: start: 20100907, end: 20100913
  5. ACETAZOLAMIDE SODIUM [Concomitant]
     Indication: INFECTION PROPHYLAXIS
     Dosage: UNK
     Route: 065
     Dates: start: 20100416, end: 20100419
  6. ACETAZOLAMIDE SODIUM [Concomitant]
     Indication: PROPHYLAXIS
     Dosage: UNK
     Route: 065
     Dates: start: 20100908, end: 20100913
  7. MELPHALAN HYDROCHLORIDE [Concomitant]
     Dosage: UNK
     Route: 065
     Dates: start: 20101101, end: 20101102
  8. METHYLPREDNISOLONE SODIUM SUCCINATE [Concomitant]
     Indication: PREMEDICATION
     Dosage: UNK
     Route: 065
     Dates: start: 20101103, end: 20101104
  9. TACROLIMUS [Concomitant]
     Dosage: UNK
     Route: 065
     Dates: start: 20101130
  10. PREDNISOLONE SODIUM SUCCINATE INJ [Concomitant]
     Indication: PROPHYLAXIS AGAINST GRAFT VERSUS HOST DISEASE
     Dosage: UNK
     Route: 065
     Dates: start: 20100422, end: 20100520
  11. FILGRASTIM [Concomitant]
     Indication: PROPHYLAXIS
     Dosage: UNK
     Route: 065
     Dates: start: 20101028, end: 20101119
  12. METHOTREXATE [Concomitant]
     Indication: PROPHYLAXIS AGAINST GRAFT VERSUS HOST DISEASE
     Dosage: UNK
     Route: 065
     Dates: start: 20100423, end: 20100423
  13. VANCOMYCIN HYDROCHLORIDE [Concomitant]
     Indication: PNEUMONIA
     Dosage: UNK
     Route: 065
     Dates: start: 20100413, end: 20100514
  14. VANCOMYCIN HYDROCHLORIDE [Concomitant]
     Dosage: UNK
     Route: 065
     Dates: start: 20101028, end: 20101119
  15. CARBENIN [Concomitant]
     Indication: INFECTION PROPHYLAXIS
     Dosage: UNK
     Route: 065
     Dates: start: 20100907
  16. POLYMYXIN B SULFATE [Concomitant]
     Indication: INFECTION PROPHYLAXIS
     Dosage: UNK
     Route: 065
     Dates: start: 20100413, end: 20100521
  17. PHENYTOIN [Concomitant]
     Indication: CONVULSION PROPHYLAXIS
     Dosage: UNK
     Route: 065
     Dates: start: 20100414, end: 20100417
  18. REBAMIPIDE [Concomitant]
     Indication: PROPHYLAXIS AGAINST GASTROINTESTINAL ULCER
     Dosage: UNK
     Route: 065
     Dates: start: 20101028
  19. DEXAMETHASONE [Concomitant]
     Indication: ACUTE LYMPHOCYTIC LEUKAEMIA
     Dosage: UNK
     Route: 065
     Dates: start: 20101031, end: 20101115
  20. HUMAN RED BLOOD CELLS [Concomitant]
     Indication: ACUTE LYMPHOCYTIC LEUKAEMIA
     Dosage: UNK
     Route: 065
     Dates: start: 20101101, end: 20101101
  21. FAMOTIDINE [Concomitant]
     Dosage: UNK
     Route: 065
     Dates: start: 20110131, end: 20110313
  22. TEICOPLANIN [Concomitant]
     Indication: INFECTION PROPHYLAXIS
     Dosage: UNK
     Route: 065
     Dates: start: 20100413, end: 20100426
  23. GRANISETRON HCL [Concomitant]
     Dosage: UNK
     Route: 065
     Dates: start: 20101001
  24. MICAFUNGIN SODIUM [Concomitant]
     Indication: INFECTION PROPHYLAXIS
     Dosage: UNK
     Route: 065
     Dates: start: 20100413, end: 20100423
  25. TACROLIMUS [Concomitant]
     Dosage: UNK
     Route: 065
     Dates: start: 20101107, end: 20101129
  26. MEROPENEM [Concomitant]
     Dosage: UNK
     Route: 065
     Dates: start: 20101028, end: 20101214
  27. FILGRASTIM [Concomitant]
     Indication: WHITE BLOOD CELL COUNT INCREASED
     Dosage: UNK
     Route: 065
     Dates: start: 20100423, end: 20100507
  28. METHOTREXATE [Concomitant]
     Dosage: UNK
     Route: 065
     Dates: start: 20100424, end: 20100424
  29. IRRADIATED PLATELET CONCENTRATE [Concomitant]
     Indication: ACUTE LYMPHOCYTIC LEUKAEMIA
     Dosage: 10 U, UNK
     Route: 065
     Dates: start: 20100414, end: 20100414
  30. IRRADIATED PLATELET CONCENTRATE [Concomitant]
     Dosage: 10 U, UNK
     Route: 065
     Dates: start: 20100513, end: 20100516
  31. CEFOZOPRAN HYDROCHLORIDE [Concomitant]
     Indication: INFECTION PROPHYLAXIS
     Dosage: UNK
     Route: 065
     Dates: start: 20101117, end: 20101119
  32. ASPARTATE POTASSIUM [Concomitant]
     Indication: MINERAL SUPPLEMENTATION
     Dosage: UNK
     Route: 065
     Dates: start: 20101028, end: 20101030
  33. PLATELETS [Concomitant]
     Indication: ACUTE LYMPHOCYTIC LEUKAEMIA
     Dosage: UNK
     Route: 065
     Dates: start: 20101029, end: 20101130
  34. HUMAN RED BLOOD CELLS [Concomitant]
     Indication: BONE MARROW CONDITIONING REGIMEN
     Dosage: UNK
     Route: 065
     Dates: start: 20101110, end: 20101110
  35. HUMAN RED BLOOD CELLS [Concomitant]
     Dosage: UNK
     Route: 065
     Dates: start: 20101111, end: 20101111
  36. GLYCYRON [Concomitant]
     Indication: PROPHYLAXIS
     Dosage: UNK
     Route: 065
     Dates: start: 20110226, end: 20110317
  37. FLUDARA [Concomitant]
     Indication: BONE MARROW CONDITIONING REGIMEN
     Dosage: UNK
     Route: 065
     Dates: start: 20101031, end: 20101104
  38. FAMOTIDINE [Concomitant]
     Indication: PROPHYLAXIS
     Dosage: UNK
     Route: 065
     Dates: start: 20100413, end: 20100519
  39. STRONGER NEO MINOPHAGEN C [Concomitant]
     Dosage: UNK
     Route: 065
     Dates: start: 20101001
  40. MELPHALAN HYDROCHLORIDE [Concomitant]
     Indication: BONE MARROW CONDITIONING REGIMEN
     Dosage: UNK
     Route: 065
     Dates: start: 20100419, end: 20100420
  41. MEROPENEM [Concomitant]
     Indication: PNEUMONIA
     Dosage: UNK
     Route: 065
     Dates: start: 20101119
  42. PENTAMIDINE ISETHIONATE [Concomitant]
     Dosage: UNK
     Route: 065
     Dates: start: 20100603, end: 20100603
  43. PENTAMIDINE ISETHIONATE [Concomitant]
     Dosage: UNK
     Route: 065
     Dates: start: 20100709, end: 20100709
  44. PENTAMIDINE ISETHIONATE [Concomitant]
     Dosage: UNK
     Route: 065
     Dates: start: 20100805, end: 20100805
  45. PENTAMIDINE ISETHIONATE [Concomitant]
     Dosage: UNK
     Route: 065
     Dates: start: 20100928, end: 20100928
  46. IRRADIATED PLATELET CONCENTRATE [Concomitant]
     Dosage: 10 U, UNK
     Route: 065
     Dates: start: 20100421, end: 20100427
  47. IRRADIATED ERYTHROCYTE CONCENTRATE [Concomitant]
     Dosage: 2 U, UNK
     Route: 065
     Dates: start: 20100918, end: 20100918
  48. IRRADIATED ERYTHROCYTE CONCENTRATE [Concomitant]
     Dosage: 2 U, UNK
     Route: 065
     Dates: start: 20101022, end: 20101022
  49. HYDROXYZINE HCL [Concomitant]
     Indication: PREMEDICATION
     Dosage: UNK
     Dates: start: 20101103, end: 20101104
  50. AMINO ACIDS NOS W [Concomitant]
     Indication: MEDICAL DIET
     Dosage: UNK
     Route: 065
     Dates: start: 20101107, end: 20101128
  51. ANTITHROMBIN III HUMAN [Concomitant]
     Dosage: UNK
     Route: 065
     Dates: start: 20110217, end: 20110218
  52. ACYCLOVIR [Concomitant]
     Dosage: UNK
     Route: 065
     Dates: start: 20101028, end: 20101202
  53. PARENTERAL [Concomitant]
     Indication: MEDICAL DIET
     Dosage: UNK
     Route: 065
     Dates: start: 20110218, end: 20110303
  54. IMIPEM [Concomitant]
     Dosage: UNK
     Route: 065
     Dates: start: 20100505, end: 20100514
  55. DALTEPARIN SODIUM [Concomitant]
     Indication: ANTICOAGULANT THERAPY
     Dosage: UNK
     Route: 065
     Dates: start: 20100413, end: 20100526
  56. METHYLPREDNISOLONE SODIUM SUCCINATE [Concomitant]
     Indication: ACUTE LYMPHOCYTIC LEUKAEMIA
     Dosage: UNK
     Route: 065
     Dates: start: 20100420, end: 20100421
  57. TACROLIMUS [Concomitant]
     Indication: PROPHYLAXIS AGAINST GRAFT VERSUS HOST DISEASE
     Dosage: UNK
     Route: 065
     Dates: start: 20100517, end: 20100715
  58. METHOTREXATE [Concomitant]
     Dosage: UNK
     Route: 065
     Dates: start: 20101111, end: 20101111
  59. CARBENIN [Concomitant]
     Dosage: UNK
     Route: 065
     Dates: start: 20101202, end: 20101207
  60. URSODIOL [Concomitant]
     Dosage: UNK
     Route: 065
     Dates: start: 20101028, end: 20110225
  61. IRRADIATED PLATELET CONCENTRATE [Concomitant]
     Dosage: 10 U, UNK
     Route: 065
     Dates: start: 20100908, end: 20100915
  62. IRRADIATED PLATELET CONCENTRATE [Concomitant]
     Dosage: 10 U, UNK
     Route: 065
     Dates: start: 20100921, end: 20101021
  63. IRRADIATED ERYTHROCYTE CONCENTRATE [Concomitant]
     Dosage: 2 U, UNK
     Route: 065
     Dates: start: 20100512, end: 20100512
  64. IRRADIATED ERYTHROCYTE CONCENTRATE [Concomitant]
     Dosage: 2 U, UNK
     Route: 065
     Dates: start: 20101014, end: 20101014
  65. SODIUM ALGINATE [Concomitant]
     Indication: PROPHYLAXIS AGAINST GASTROINTESTINAL ULCER
     Dosage: UNK
     Route: 065
     Dates: start: 20101028, end: 20101218
  66. LOPERAMIDE HCL [Concomitant]
     Indication: BONE MARROW CONDITIONING REGIMEN
     Dosage: UNK
     Route: 065
     Dates: start: 20101102, end: 20110311
  67. HUMAN RED BLOOD CELLS [Concomitant]
     Dosage: UNK
     Route: 065
     Dates: start: 20101127, end: 20101127
  68. FAMOTIDINE [Concomitant]
     Dosage: UNK
     Route: 065
     Dates: start: 20101028, end: 20101214
  69. BUSULFAN [Concomitant]
     Indication: BONE MARROW CONDITIONING REGIMEN
     Dosage: UNK
     Route: 065
     Dates: start: 20100413, end: 20100417
  70. IMIPEM [Concomitant]
     Indication: INFECTION PROPHYLAXIS
     Dosage: UNK
     Route: 065
     Dates: start: 20100413, end: 20100421
  71. GRANISETRON HCL [Concomitant]
     Dosage: UNK
     Route: 065
     Dates: start: 20101028, end: 20101115
  72. STRONGER NEO MINOPHAGEN C [Concomitant]
     Dosage: UNK
     Route: 065
     Dates: start: 20100908, end: 20100924
  73. DALTEPARIN SODIUM [Concomitant]
     Dosage: UNK
     Route: 065
     Dates: start: 20101028, end: 20101207
  74. FUROSEMIDE [Concomitant]
     Dosage: UNK
     Route: 065
     Dates: start: 20100930, end: 20101006
  75. TACROLIMUS [Concomitant]
     Indication: GRAFT VERSUS HOST DISEASE
     Dosage: UNK
     Route: 065
     Dates: start: 20100421, end: 20100516
  76. PREDNISOLONE SODIUM SUCCINATE INJ [Concomitant]
     Dosage: UNK
     Route: 065
     Dates: start: 20101125, end: 20101214
  77. ACYCLOVIR [Concomitant]
     Indication: INFECTION PROPHYLAXIS
     Dosage: UNK
     Route: 065
     Dates: start: 20100423, end: 20100522
  78. ACYCLOVIR [Concomitant]
     Dosage: UNK
     Route: 065
     Dates: start: 20101028, end: 20101202
  79. VORICONAZOLE [Concomitant]
     Indication: INFECTION PROPHYLAXIS
     Dosage: UNK
     Route: 065
     Dates: start: 20100424, end: 20100506
  80. ETHYL ICOSAPENTATE [Concomitant]
     Dosage: UNK
     Route: 065
     Dates: start: 20101028, end: 20110225
  81. IRRADIATED ERYTHROCYTE CONCENTRATE [Concomitant]
     Indication: ACUTE LYMPHOCYTIC LEUKAEMIA
     Dosage: 2 U, UNK
     Route: 065
     Dates: start: 20100416, end: 20100416
  82. IRRADIATED ERYTHROCYTE CONCENTRATE [Concomitant]
     Dosage: 2 U, UNK
     Route: 065
     Dates: start: 20100420, end: 20100420
  83. GRANISETRON HCL [Concomitant]
     Dosage: UNK
     Route: 065
     Dates: start: 20100908, end: 20100923
  84. HYDROCORTISONE SODIUM SUCCINATE [Concomitant]
     Indication: PROPHYLAXIS OF NAUSEA AND VOMITING
     Dosage: UNK
     Route: 065
     Dates: start: 20100413, end: 20100424
  85. MEROPENEM [Concomitant]
     Indication: INFECTION PROPHYLAXIS
     Dosage: UNK
     Route: 065
     Dates: start: 20100421, end: 20100504
  86. METHOTREXATE [Concomitant]
     Dosage: UNK
     Route: 065
     Dates: start: 20100428, end: 20100428
  87. VORICONAZOLE [Concomitant]
     Indication: PNEUMONIA
     Dosage: UNK
     Route: 065
     Dates: start: 20100507, end: 20101015
  88. VANCOMYCIN HYDROCHLORIDE [Concomitant]
     Indication: INFECTION PROPHYLAXIS
     Dosage: UNK
     Route: 065
     Dates: start: 20100426, end: 20100509
  89. PREDNISOLONE [Concomitant]
     Dosage: UNK
     Route: 065
     Dates: start: 20100521, end: 20100625
  90. LEVOFLOXACIN [Concomitant]
     Indication: INFECTION PROPHYLAXIS
     Dosage: UNK
     Route: 065
     Dates: start: 20100621
  91. IRRADIATED PLATELET CONCENTRATE [Concomitant]
     Dosage: 10 U, UNK
     Route: 065
     Dates: start: 20100520, end: 20100520
  92. IRRADIATED ERYTHROCYTE CONCENTRATE [Concomitant]
     Dosage: 2 U, UNK
     Route: 065
     Dates: start: 20100629, end: 20100629
  93. ANTITHYMOCYTE IMMUNOGLOBULIN [Concomitant]
     Indication: PREMEDICATION
     Dosage: UNK
     Route: 065
     Dates: start: 20101031
  94. PLATELETS [Concomitant]
     Indication: BONE MARROW CONDITIONING REGIMEN
  95. UNKNOWN DRUG [Concomitant]
     Indication: PNEUMONIA
     Dosage: UNK
     Route: 065
     Dates: start: 20101029, end: 20101112
  96. CYTARABINE [Concomitant]
     Indication: BONE MARROW TRANSPLANT
     Dosage: UNK
     Route: 065
     Dates: start: 20100417, end: 20100418
  97. FAMOTIDINE [Concomitant]
     Dosage: UNK
     Route: 065
     Dates: start: 20100521
  98. GRANISETRON HCL [Concomitant]
     Indication: PROPHYLAXIS OF NAUSEA AND VOMITING
     Dosage: UNK
     Route: 065
     Dates: start: 20100413, end: 20100424
  99. STRONGER NEO MINOPHAGEN C [Concomitant]
     Indication: PROPHYLAXIS
     Dosage: UNK
     Route: 065
     Dates: start: 20100413, end: 20100609
  100. GLUTATHIONE [Concomitant]
     Dosage: UNK
     Route: 065
     Dates: start: 20101001
  101. GLUTATHIONE [Concomitant]
     Dosage: UNK
     Route: 065
     Dates: start: 20101028, end: 20101214
  102. FUROSEMIDE [Concomitant]
     Indication: PROPHYLAXIS
     Dosage: UNK
     Route: 065
     Dates: start: 20100414, end: 20100503
  103. SODIUM BICARBONATE [Concomitant]
     Indication: PROPHYLAXIS
     Dosage: UNK
     Route: 065
     Dates: start: 20100416, end: 20100419
  104. VORICONAZOLE [Concomitant]
     Dosage: UNK
     Route: 065
     Dates: start: 20101119
  105. URSODIOL [Concomitant]
     Indication: PROPHYLAXIS
     Dosage: UNK
     Route: 065
     Dates: start: 20100413, end: 20100805
  106. ETHYL ICOSAPENTATE [Concomitant]
     Indication: PROPHYLAXIS
     Dosage: UNK
     Route: 065
     Dates: start: 20100413, end: 20100709
  107. POLYMYXIN B SULFATE [Concomitant]
     Indication: PRODUCT USED FOR UNKNOWN INDICATION
     Dosage: UNK
     Route: 065
     Dates: start: 20101028, end: 20101119
  108. PREDNISOLONE [Concomitant]
     Indication: PROPHYLAXIS AGAINST GRAFT VERSUS HOST DISEASE
     Dosage: UNK
     Route: 065
     Dates: start: 20100521, end: 20100907
  109. CIPROFLOXACIN [Concomitant]
     Indication: INFECTION PROPHYLAXIS
     Dosage: UNK
     Route: 065
     Dates: start: 20101119, end: 20101201
  110. SPIRONOLACTONE [Concomitant]
     Indication: PROPHYLAXIS
     Dosage: UNK
     Route: 065
     Dates: start: 20101028, end: 20101030
  111. POLAPREZINC [Concomitant]
     Indication: PROPHYLAXIS AGAINST GASTROINTESTINAL ULCER
     Dosage: UNK
     Route: 065
     Dates: start: 20101106, end: 20111124
  112. THYMOGLOBULIN [Suspect]
     Indication: BONE MARROW CONDITIONING REGIMEN
     Dosage: 55 MG, QD
     Route: 042
     Dates: start: 20100420, end: 20100421
  113. CYTARABINE [Concomitant]
     Indication: ACUTE LYMPHOCYTIC LEUKAEMIA
     Dosage: UNK
     Route: 065
     Dates: start: 20100325, end: 20100412
  114. ETOPOSIDE [Concomitant]
     Indication: ACUTE LYMPHOCYTIC LEUKAEMIA
     Dosage: UNK
     Route: 065
     Dates: start: 20100325, end: 20100412
  115. ETOPOSIDE [Concomitant]
     Indication: BONE MARROW CONDITIONING REGIMEN
     Dosage: UNK
     Route: 065
     Dates: start: 20101030, end: 20101030
  116. TEICOPLANIN [Concomitant]
     Indication: PNEUMONIA
     Dosage: UNK
     Route: 065
     Dates: start: 20101028, end: 20101117
  117. STRONGER NEO MINOPHAGEN C [Concomitant]
     Dosage: UNK
     Route: 065
     Dates: start: 20101028, end: 20101214
  118. GLUTATHIONE [Concomitant]
     Dosage: UNK
     Route: 065
     Dates: start: 20100908, end: 20100924
  119. MICAFUNGIN SODIUM [Concomitant]
     Indication: PNEUMONIA
     Dosage: UNK
     Route: 065
     Dates: start: 20101028, end: 20101213
  120. FUROSEMIDE [Concomitant]
     Dosage: UNK
     Route: 065
     Dates: start: 20101028, end: 20101122
  121. MINOCYCLINE HYDROCHLORIDE [Concomitant]
     Indication: INFECTION PROPHYLAXIS
     Dosage: UNK
     Route: 065
     Dates: start: 20100418, end: 20100506
  122. PREDNISOLONE SODIUM SUCCINATE INJ [Concomitant]
     Indication: CAPILLARY LEAK SYNDROME
     Dosage: UNK
     Route: 065
     Dates: start: 20100530, end: 20100603
  123. METHOTREXATE [Concomitant]
     Dosage: UNK
     Route: 065
     Dates: start: 20101106, end: 20101106
  124. METHOTREXATE [Concomitant]
     Dosage: UNK
     Route: 065
     Dates: start: 20101108, end: 20101108
  125. VORICONAZOLE [Concomitant]
     Dosage: UNK
     Route: 065
     Dates: start: 20101028, end: 20101119
  126. PENTAMIDINE ISETHIONATE [Concomitant]
     Indication: ANTIFUNGAL PROPHYLAXIS
     Dosage: UNK
     Route: 065
     Dates: start: 20100506, end: 20100506
  127. IRRADIATED PLATELET CONCENTRATE [Concomitant]
     Dosage: 10 U, UNK
     Route: 065
     Dates: start: 20100417, end: 20100419
  128. IRRADIATED PLATELET CONCENTRATE [Concomitant]
     Dosage: 10 U, UNK
     Route: 065
     Dates: start: 20100429, end: 20100503
  129. IRRADIATED PLATELET CONCENTRATE [Concomitant]
     Dosage: 10 U, UNK
     Route: 065
     Dates: start: 20100505, end: 20100511
  130. IRRADIATED ERYTHROCYTE CONCENTRATE [Concomitant]
     Dosage: 2 U, UNK
     Route: 065
     Dates: start: 20100428, end: 20100428
  131. IRRADIATED ERYTHROCYTE CONCENTRATE [Concomitant]
     Dosage: 2 U, UNK
     Route: 065
     Dates: start: 20100504, end: 20100504
  132. IRRADIATED ERYTHROCYTE CONCENTRATE [Concomitant]
     Dosage: 2 U, UNK
     Route: 065
     Dates: start: 20100928, end: 20100928
  133. IRRADIATED ERYTHROCYTE CONCENTRATE [Concomitant]
     Dosage: 2 U, UNK
     Route: 065
     Dates: start: 20101005, end: 20101005
  134. ANTITHROMBIN III HUMAN [Concomitant]
     Indication: PROPHYLAXIS
     Dosage: UNK
     Route: 065
     Dates: start: 20101118, end: 20101120
  135. HUMAN RED BLOOD CELLS [Concomitant]
     Dosage: UNK
     Route: 065
     Dates: start: 20101119, end: 20101119

REACTIONS (17)
  - CYSTITIS HAEMORRHAGIC [None]
  - DIARRHOEA [None]
  - OBLITERATIVE BRONCHIOLITIS [None]
  - STOMATITIS [None]
  - GRAFT VERSUS HOST DISEASE IN INTESTINE [None]
  - HYPERTENSION [None]
  - CAPILLARY LEAK SYNDROME [None]
  - SEPTIC SHOCK [None]
  - ACUTE LYMPHOCYTIC LEUKAEMIA RECURRENT [None]
  - TRANSIENT ISCHAEMIC ATTACK [None]
  - PYREXIA [None]
  - GASTRITIS [None]
  - ENGRAFT FAILURE [None]
  - CHRONIC GRAFT VERSUS HOST DISEASE [None]
  - HEPATIC FUNCTION ABNORMAL [None]
  - HYPERTRIGLYCERIDAEMIA [None]
  - GRAFT VERSUS HOST DISEASE IN SKIN [None]
